FAERS Safety Report 8221055-2 (Version None)
Quarter: 2012Q1

REPORT INFORMATION
  Report Type: 
  Country: None (occurrence: None)
  Receive Date: 20120320
  Receipt Date: 20120307
  Transmission Date: 20120608
  Serious: No
  Sender: FDA-Public Use
  Company Number: JP-ELI_LILLY_AND_COMPANY-JP201202004941

PATIENT
  Age: 80 Year
  Sex: Female

DRUGS (4)
  1. VOLTAREN-XR [Concomitant]
     Indication: BACK PAIN
     Dosage: UNK
     Route: 048
  2. ASPIRIN [Concomitant]
     Dosage: UNK
  3. EVISTA [Suspect]
     Indication: OSTEOPOROSIS
     Dosage: 60 MG, QD
     Route: 048
     Dates: start: 20120111, end: 20120117
  4. OPALMON [Concomitant]
     Indication: LUMBAR SPINAL STENOSIS
     Dosage: UNK
     Route: 048

REACTIONS (2)
  - PERIPHERAL VASCULAR DISORDER [None]
  - MELAENA [None]
